FAERS Safety Report 23560273 (Version 1)
Quarter: 2024Q1

REPORT INFORMATION
  Report Type: Spontaneous
  Country: AU (occurrence: None)
  Receive Date: 20240223
  Receipt Date: 20240223
  Transmission Date: 20240410
  Serious: Yes (Other)
  Sender: FDA-Public Use
  Company Number: 2024A042801

PATIENT
  Age: 74 Year
  Sex: Male

DRUGS (2)
  1. ACALABRUTINIB [Suspect]
     Active Substance: ACALABRUTINIB
     Route: 048
     Dates: start: 2015, end: 2018
  2. RITUXIMAB/VENETOCLAX [Concomitant]
     Dates: start: 2018

REACTIONS (1)
  - Disease progression [Not Recovered/Not Resolved]
